FAERS Safety Report 15658240 (Version 1)
Quarter: 2018Q4

REPORT INFORMATION
  Report Type: Spontaneous
  Country: FR (occurrence: FR)
  Receive Date: 20181126
  Receipt Date: 20181126
  Transmission Date: 20190205
  Serious: Yes (Other)
  Sender: FDA-Public Use
  Company Number: FR-TEVA-2018-FR-978748

PATIENT
  Age: 9 Year
  Sex: Male

DRUGS (1)
  1. ZOPICLONE [Suspect]
     Active Substance: ZOPICLONE
     Route: 048

REACTIONS (2)
  - Victim of chemical submission [Recovering/Resolving]
  - Sedation [Recovered/Resolved]
